FAERS Safety Report 23133250 (Version 2)
Quarter: 2024Q1

REPORT INFORMATION
  Report Type: Report from Study
  Country: FR (occurrence: FR)
  Receive Date: 20231101
  Receipt Date: 20240311
  Transmission Date: 20240409
  Serious: Yes (Other)
  Sender: FDA-Public Use
  Company Number: FR-SA-SAC20231027001570

PATIENT
  Age: 73 Year
  Sex: Female
  Weight: 58 kg

DRUGS (3)
  1. ALEMTUZUMAB [Suspect]
     Active Substance: ALEMTUZUMAB
     Indication: T-cell prolymphocytic leukaemia
     Dosage: 3 MG, QD
     Route: 065
     Dates: start: 202308, end: 2023
  2. ALEMTUZUMAB [Suspect]
     Active Substance: ALEMTUZUMAB
     Dosage: 10 MG, QD
     Route: 065
     Dates: start: 2023, end: 2023
  3. ALEMTUZUMAB [Suspect]
     Active Substance: ALEMTUZUMAB
     Dosage: 30 MG ON D1 - D3 - EVERY 7 DAYS
     Route: 065
     Dates: start: 2023, end: 20231127

REACTIONS (5)
  - Febrile neutropenia [Unknown]
  - Cytomegalovirus infection reactivation [Recovered/Resolved]
  - Haematotoxicity [Unknown]
  - Herpes simplex reactivation [Recovered/Resolved]
  - Pyrexia [Unknown]

NARRATIVE: CASE EVENT DATE: 20230101
